FAERS Safety Report 5220083-9 (Version None)
Quarter: 2006Q4

REPORT INFORMATION
  Report Type: 
  Country: None (occurrence: None)
  Receive Date: 20061121
  Receipt Date: 20060921
  Transmission Date: 20070319
  Serious: No
  Sender: FDA-Public Use
  Company Number: TPA2006A01638

PATIENT
  Age: 81 Year
  Sex: Female
  Weight: 41.7309 kg

DRUGS (4)
  1. ROZEREM [Suspect]
     Indication: INSOMNIA
     Dosage: 8 MG, QHS, PER ORAL
     Route: 048
     Dates: start: 20060914
  2. LOTREL [Concomitant]
  3. AMBIEN [Concomitant]
  4. MULTI-VITAMINS [Concomitant]

REACTIONS (1)
  - INSOMNIA [None]
